FAERS Safety Report 8838711 (Version 1)
Quarter: 2012Q4

REPORT INFORMATION
  Report Type: 
  Country: US (occurrence: US)
  Receive Date: 20121012
  Receipt Date: 20121012
  Transmission Date: 20130627
  Serious: Yes (Other)
  Sender: FDA-Public Use
  Company Number: US-TEVA-363592USA

PATIENT
  Age: 65 Year
  Sex: Male
  Weight: 72.64 kg

DRUGS (7)
  1. PROAIR HFA [Suspect]
     Indication: CHRONIC OBSTRUCTIVE PULMONARY DISEASE
     Dosage: 360 Microgram Daily; 720 mcg
  2. SPIRIVA [Concomitant]
     Indication: CHRONIC OBSTRUCTIVE PULMONARY DISEASE
  3. PULMICORT RESPULES [Concomitant]
     Indication: CHRONIC OBSTRUCTIVE PULMONARY DISEASE
  4. HYDRALAZINE [Concomitant]
     Indication: HYPERTENSION
     Route: 048
  5. FLOMAX [Concomitant]
     Indication: BENIGN PROSTATIC HYPERPLASIA
     Route: 048
  6. PRIMATENE [Concomitant]
     Indication: DYSPNOEA
  7. PRIMATENE [Concomitant]
     Indication: CHRONIC OBSTRUCTIVE PULMONARY DISEASE

REACTIONS (1)
  - Pharyngeal oedema [Not Recovered/Not Resolved]
